FAERS Safety Report 4993044-2 (Version None)
Quarter: 2006Q1

REPORT INFORMATION
  Report Type: 
  Country: None (occurrence: None)
  Receive Date: 20060313
  Receipt Date: 20060109
  Transmission Date: 20060701
  Serious: No
  Sender: FDA-Public Use
  Company Number: 2006-BP-00024BP

PATIENT
  Age: 68 Year
  Sex: Female

DRUGS (7)
  1. SPIRIVA [Suspect]
     Indication: EMPHYSEMA
     Dosage: 18 MCG (18 MCG), IH
     Route: 055
     Dates: start: 20050401
  2. VERAPAMIL [Concomitant]
  3. DIAZIDE (GLICLAZIDE) [Concomitant]
  4. PROTONIX [Concomitant]
  5. FORADIL [Concomitant]
  6. ALBUTEROL SULFATE AUTOHALER [Concomitant]
  7. PRIMIDONE [Concomitant]

REACTIONS (2)
  - DRUG EFFECT DECREASED [None]
  - DYSPNOEA [None]
